FAERS Safety Report 5019354-0 (Version None)
Quarter: 2006Q2

REPORT INFORMATION
  Report Type: 
  Country: None (occurrence: None)
  Receive Date: 20060530
  Receipt Date: 20060510
  Transmission Date: 20061013
  Serious: Yes (Hospitalization)
  Sender: FDA-Public Use
  Company Number: 2006-083

PATIENT
  Age: 7 Year
  Sex: Male
  Weight: 16 kg

DRUGS (2)
  1. AZITHROMYCIN [Suspect]
     Indication: RESPIRATORY TRACT INFECTION
     Dosage: 250MG DAILY
     Dates: start: 20060101, end: 20060101
  2. FLEMOXIN SOLUTAB [Concomitant]

REACTIONS (1)
  - RASH [None]
